FAERS Safety Report 19454980 (Version 1)
Quarter: 2021Q2

REPORT INFORMATION
  Report Type: Report from Study
  Country: IT (occurrence: IT)
  Receive Date: 20210623
  Receipt Date: 20210623
  Transmission Date: 20210717
  Serious: Yes (Other)
  Sender: FDA-Public Use
  Company Number: IT-TAKEDA-2021TUS038179

PATIENT
  Age: 81 Year
  Sex: Female

DRUGS (8)
  1. KCL RETARD SLOW K [Concomitant]
     Indication: HYPOKALAEMIA
     Dosage: 1 INTERNATIONAL UNIT, BID
     Route: 048
     Dates: start: 20210316, end: 20210427
  2. TEDUGLUTIDE [Suspect]
     Active Substance: TEDUGLUTIDE
     Indication: SHORT-BOWEL SYNDROME
     Dosage: 2.4 MILLIGRAM, QD
     Route: 065
     Dates: start: 20180529
  3. TEDUGLUTIDE [Suspect]
     Active Substance: TEDUGLUTIDE
     Indication: SHORT-BOWEL SYNDROME
     Dosage: 2.4 MILLIGRAM, QD
     Route: 065
     Dates: start: 20180529
  4. VAGILEN [Concomitant]
     Active Substance: METRONIDAZOLE
     Indication: DIVERTICULITIS
     Dosage: 999 UNK , TID
     Route: 048
     Dates: start: 20210316
  5. TEDUGLUTIDE [Suspect]
     Active Substance: TEDUGLUTIDE
     Indication: SHORT-BOWEL SYNDROME
     Dosage: 2.4 MILLIGRAM, QD
     Route: 065
     Dates: start: 20180529
  6. IMODIUM [Concomitant]
     Active Substance: LOPERAMIDE HYDROCHLORIDE
     Indication: DIARRHOEA
     Dosage: 999 UNK, QD
     Route: 048
     Dates: start: 20210129, end: 20210316
  7. POLASE [Concomitant]
     Active Substance: MAGNESIUM ASPARTATE\POTASSIUM ASPARTATE
     Indication: SHORT-BOWEL SYNDROME
     Dosage: 1 UNK, QD
     Route: 048
     Dates: start: 20210317, end: 20210417
  8. TEDUGLUTIDE [Suspect]
     Active Substance: TEDUGLUTIDE
     Indication: SHORT-BOWEL SYNDROME
     Dosage: 2.4 MILLIGRAM, QD
     Route: 065
     Dates: start: 20180529

REACTIONS (1)
  - Hypokalaemia [Recovered/Resolved]

NARRATIVE: CASE EVENT DATE: 20210129
